FAERS Safety Report 14019541 (Version 1)
Quarter: 2017Q3

REPORT INFORMATION
  Report Type: Spontaneous
  Country: US (occurrence: US)
  Receive Date: 20170928
  Receipt Date: 20170928
  Transmission Date: 20171128
  Serious: Yes (Other)
  Sender: FDA-Public Use
  Company Number: US-UCBSA-2017025811

PATIENT
  Age: 44 Year
  Sex: Female

DRUGS (13)
  1. ZONEGRAN [Concomitant]
     Active Substance: ZONISAMIDE
     Indication: PRODUCT USED FOR UNKNOWN INDICATION
     Dosage: 600 MG, ONCE DAILY (QD)
     Route: 048
     Dates: start: 20121121
  2. LAMOTRIGINE. [Concomitant]
     Active Substance: LAMOTRIGINE
     Indication: PRODUCT USED FOR UNKNOWN INDICATION
  3. KEPPRA XR [Suspect]
     Active Substance: LEVETIRACETAM
     Indication: SEIZURE
     Dosage: 2000 MG, ONCE DAILY (QD)
     Route: 048
     Dates: start: 20130702, end: 20170724
  4. KEPPRA [Suspect]
     Active Substance: LEVETIRACETAM
     Indication: EPILEPSY
     Dosage: 1000 MG, 2X/DAY (BID)
     Route: 048
     Dates: end: 20130702
  5. CAFFEINE. [Concomitant]
     Active Substance: CAFFEINE
     Indication: PRODUCT USED FOR UNKNOWN INDICATION
     Dosage: UNK
  6. AMBIEN [Concomitant]
     Active Substance: ZOLPIDEM TARTRATE
     Indication: PRODUCT USED FOR UNKNOWN INDICATION
     Dosage: 10 MG TAB, 0.5 TAB QHS, PRN
  7. ZOLOFT [Concomitant]
     Active Substance: SERTRALINE HYDROCHLORIDE
     Indication: PRODUCT USED FOR UNKNOWN INDICATION
     Dosage: 150 MG, ONCE DAILY (QD)
  8. AMFETAMINE ASP W/AMFET SUL/DEXAM SA/DEXAM SUL [Concomitant]
     Indication: PRODUCT USED FOR UNKNOWN INDICATION
     Dosage: 20 MG, ONCE DAILY (QD)
  9. KEPPRA XR [Suspect]
     Active Substance: LEVETIRACETAM
     Indication: EPILEPSY
  10. LAMOTRIGINE. [Concomitant]
     Active Substance: LAMOTRIGINE
     Indication: PRODUCT USED FOR UNKNOWN INDICATION
     Dosage: 200 MG, 2 IN AM AND 3 AT NIGHT
     Route: 048
     Dates: start: 20130702
  11. HYDROXYCUT [Suspect]
     Active Substance: DIETARY SUPPLEMENT
     Indication: SUPPLEMENTATION THERAPY
     Dosage: UNK
  12. MULTIVITAMIN [Concomitant]
     Active Substance: VITAMINS
     Indication: PRODUCT USED FOR UNKNOWN INDICATION
  13. ALCOHOL. [Concomitant]
     Active Substance: ALCOHOL

REACTIONS (15)
  - Epilepsy [Unknown]
  - Disturbance in attention [Unknown]
  - Fatigue [Not Recovered/Not Resolved]
  - Myoclonus [Unknown]
  - Off label use [Unknown]
  - Petit mal epilepsy [Unknown]
  - Anger [Unknown]
  - Lethargy [Not Recovered/Not Resolved]
  - Amnesia [Unknown]
  - Focal dyscognitive seizures [Unknown]
  - Insomnia [Not Recovered/Not Resolved]
  - Generalised tonic-clonic seizure [Unknown]
  - Seizure [Unknown]
  - Mood altered [Unknown]
  - Multiple-drug resistance [Unknown]

NARRATIVE: CASE EVENT DATE: 20120620
